FAERS Safety Report 22243257 (Version 1)
Quarter: 2023Q2

REPORT INFORMATION
  Report Type: Spontaneous
  Country: US (occurrence: None)
  Receive Date: 20230420
  Receipt Date: 20230420
  Transmission Date: 20230722
  Serious: No
  Sender: FDA-Public Use
  Company Number: None

PATIENT
  Age: 65 Year
  Sex: Female
  Weight: 72.57 kg

DRUGS (1)
  1. HUMIRA [Suspect]
     Active Substance: ADALIMUMAB
     Indication: Rheumatoid arthritis
     Dosage: FREQUENCY : EVERY OTHER WEEK;?
     Route: 058
     Dates: start: 202303

REACTIONS (9)
  - Upper respiratory tract infection [None]
  - Cough [None]
  - Injection site erythema [None]
  - Injection site pain [None]
  - Injection site rash [None]
  - Injection site swelling [None]
  - Injection site pruritus [None]
  - Injection site bruising [None]
  - Sinus disorder [None]
